FAERS Safety Report 4667748-5 (Version None)
Quarter: 2005Q2

REPORT INFORMATION
  Report Type: 
  Country: None (occurrence: None)
  Receive Date: 20050520
  Receipt Date: 20050512
  Transmission Date: 20051028
  Serious: Yes (Other)
  Sender: FDA-Public Use
  Company Number: US-GLAXOSMITHKLINE-A0558333A

PATIENT
  Age: 32 Year
  Sex: Female

DRUGS (3)
  1. PAXIL [Suspect]
     Indication: DEPRESSION
     Route: 048
     Dates: start: 20030101, end: 20030101
  2. XANAX [Concomitant]
     Indication: DRUG USE FOR UNKNOWN INDICATION
     Route: 065
  3. LEVOXYL [Concomitant]
     Indication: DRUG USE FOR UNKNOWN INDICATION
     Route: 065

REACTIONS (8)
  - AGGRESSION [None]
  - AMNESIA [None]
  - ANGER [None]
  - ANXIETY [None]
  - DYSPNOEA [None]
  - EMOTIONAL DISORDER [None]
  - INSOMNIA [None]
  - PANIC ATTACK [None]
